FAERS Safety Report 7606628-X (Version None)
Quarter: 2011Q3

REPORT INFORMATION
  Report Type: 
  Country: None (occurrence: None)
  Receive Date: 20110713
  Receipt Date: 20110704
  Transmission Date: 20111222
  Serious: Yes (Hospitalization, Other)
  Sender: FDA-Public Use
  Company Number: PHHO2011CA09336

PATIENT
  Sex: Female
  Weight: 27.7 kg

DRUGS (1)
  1. ILARIS [Suspect]
     Indication: CRYOPYRIN ASSOCIATED PERIODIC SYNDROME
     Dosage: 58 MG/ MONTH
     Route: 048
     Dates: start: 20100816, end: 20110502

REACTIONS (3)
  - NEUTROPENIA [None]
  - PNEUMONIA [None]
  - LEUKOPENIA [None]
